FAERS Safety Report 25652511 (Version 1)
Quarter: 2025Q3

REPORT INFORMATION
  Report Type: Report from Study
  Country: US (occurrence: US)
  Receive Date: 20250807
  Receipt Date: 20250807
  Transmission Date: 20251020
  Serious: Yes (Life-Threatening, Hospitalization, Other)
  Sender: BOEHRINGER INGELHEIM
  Company Number: US-BoehringerIngelheim-2025-BI-082381

PATIENT
  Age: 66 Year
  Sex: Female
  Weight: 87.54 kg

DRUGS (1)
  1. JARDIANCE [Suspect]
     Active Substance: EMPAGLIFLOZIN
     Indication: Diabetes mellitus inadequate control
     Dates: start: 20250521

REACTIONS (4)
  - Diabetic coma [Not Recovered/Not Resolved]
  - Burns third degree [Not Recovered/Not Resolved]
  - Cataract [Not Recovered/Not Resolved]
  - Burn infection [Unknown]

NARRATIVE: CASE EVENT DATE: 20250120
